FAERS Safety Report 8247183-3 (Version None)
Quarter: 2012Q1

REPORT INFORMATION
  Report Type: 
  Country: None (occurrence: None)
  Receive Date: 20120330
  Receipt Date: 20120321
  Transmission Date: 20120608
  Serious: Yes (Hospitalization)
  Sender: FDA-Public Use
  Company Number: CA-ROCHE-1054065

PATIENT
  Sex: Female

DRUGS (6)
  1. VENTOLIN [Concomitant]
  2. NEXIUM [Concomitant]
  3. XOLAIR [Suspect]
     Indication: ASTHMA
     Route: 058
     Dates: start: 20110621, end: 20120308
  4. ADVAIR DISKUS 100/50 [Concomitant]
  5. SINGULAIR [Concomitant]
  6. RHINOCORT [Concomitant]

REACTIONS (1)
  - ASTHMA [None]
